FAERS Safety Report 17376507 (Version 1)
Quarter: 2020Q1

REPORT INFORMATION
  Report Type: Spontaneous
  Country: US (occurrence: US)
  Receive Date: 20200122
  Receipt Date: 20200122
  Transmission Date: 20200409
  Serious: No
  Sender: FDA-Public Use
  Company Number: None

PATIENT
  Age: 50 Year
  Sex: Female

DRUGS (2)
  1. HUMIRA [Concomitant]
     Active Substance: ADALIMUMAB
  2. ENBREL [Concomitant]
     Active Substance: ETANERCEPT
     Route: 058
     Dates: start: 20200101

REACTIONS (1)
  - Off label use [None]

NARRATIVE: CASE EVENT DATE: 20200122
